FAERS Safety Report 18615025 (Version 8)
Quarter: 2024Q4

REPORT INFORMATION
  Report Type: Report from Study
  Country: US (occurrence: US)
  Receive Date: 20201214
  Receipt Date: 20241112
  Transmission Date: 20250114
  Serious: Yes (Hospitalization, Other)
  Sender: TAKEDA
  Company Number: US-SHIRE-US201900993

PATIENT
  Age: 77 Year
  Sex: Female
  Weight: 55 kg

DRUGS (38)
  1. TEDUGLUTIDE [Suspect]
     Active Substance: TEDUGLUTIDE
     Indication: Short-bowel syndrome
     Dosage: 2.8 MILLIGRAM, QD
     Dates: start: 20160518, end: 20170601
  2. TEDUGLUTIDE [Suspect]
     Active Substance: TEDUGLUTIDE
     Dosage: 5 MILLIGRAM, QD
     Dates: start: 20170606, end: 20170705
  3. TEDUGLUTIDE [Suspect]
     Active Substance: TEDUGLUTIDE
     Dosage: 5 MILLIGRAM, 3/WEEK
     Dates: start: 20171004, end: 20180117
  4. TEDUGLUTIDE [Suspect]
     Active Substance: TEDUGLUTIDE
     Dosage: 2.8 MILLIGRAM, QD
     Dates: start: 20180117, end: 20180514
  5. TEDUGLUTIDE [Suspect]
     Active Substance: TEDUGLUTIDE
     Dosage: 5 MILLIGRAM, QD
     Dates: start: 20180514, end: 20180718
  6. TEDUGLUTIDE [Suspect]
     Active Substance: TEDUGLUTIDE
     Dosage: 1.25 MILLIGRAM, QD
     Dates: start: 20180718, end: 20180730
  7. TEDUGLUTIDE [Suspect]
     Active Substance: TEDUGLUTIDE
     Dosage: 2.8 MILLIGRAM, QD
     Dates: start: 20180730, end: 20200311
  8. TEDUGLUTIDE [Suspect]
     Active Substance: TEDUGLUTIDE
     Dosage: 1 MILLIGRAM, QD
     Dates: start: 20200311
  9. LOPRESSOR [Concomitant]
     Active Substance: METOPROLOL TARTRATE
     Indication: Essential hypertension
     Dosage: 25 MILLIGRAM, BID
     Dates: start: 20210303
  10. LOPRESSOR [Concomitant]
     Active Substance: METOPROLOL TARTRATE
     Indication: Chronic kidney disease
  11. CATAPRES [Concomitant]
     Active Substance: CLONIDINE HYDROCHLORIDE
     Indication: Essential hypertension
  12. CATAPRES [Concomitant]
     Active Substance: CLONIDINE HYDROCHLORIDE
     Indication: Chronic kidney disease
  13. NORVASC [Concomitant]
     Active Substance: AMLODIPINE BESYLATE
     Indication: Essential hypertension
  14. NORVASC [Concomitant]
     Active Substance: AMLODIPINE BESYLATE
     Indication: Chronic kidney disease
  15. PAXIL [Concomitant]
     Active Substance: PAROXETINE HYDROCHLORIDE
     Indication: Major depression
  16. LOPERAMIDE [Concomitant]
     Active Substance: LOPERAMIDE
     Indication: Diarrhoea
  17. MAGNESIUM SULFATE [Concomitant]
     Active Substance: MAGNESIUM SULFATE
     Indication: Product used for unknown indication
  18. POTASSIUM ACETATE [Concomitant]
     Active Substance: POTASSIUM ACETATE
     Indication: Product used for unknown indication
  19. CREON [Concomitant]
     Active Substance: PANCRELIPASE AMYLASE\PANCRELIPASE LIPASE\PANCRELIPASE PROTEASE
     Indication: Abdominal pain
  20. IMODIUM [Concomitant]
     Active Substance: LOPERAMIDE HYDROCHLORIDE
     Indication: Abdominal pain
     Dosage: 4 MILLIGRAM, 2 EVERY 6 HRS
  21. IMODIUM [Concomitant]
     Active Substance: LOPERAMIDE HYDROCHLORIDE
     Indication: Short-bowel syndrome
  22. THIAMINE HYDROCHLORIDE [Concomitant]
     Active Substance: THIAMINE HYDROCHLORIDE
     Indication: Hypovitaminosis
     Dosage: 50 MILLIGRAM, QD
     Dates: start: 20141203, end: 20170819
  23. PYRIDOXINE HYDROCHLORIDE [Concomitant]
     Active Substance: PYRIDOXINE HYDROCHLORIDE
     Indication: Hypovitaminosis
     Dosage: 50 MILLIGRAM, TID
     Dates: start: 20170819
  24. FERROUS SULFATE [Concomitant]
     Active Substance: FERROUS SULFATE
     Indication: Anaemia
     Dosage: 325 MILLIGRAM, QD
     Dates: start: 20170819
  25. VOLTAREN [Concomitant]
     Active Substance: DICLOFENAC SODIUM
     Indication: Back pain
     Dosage: 2 GRAM, QID
     Route: 061
     Dates: start: 20201202
  26. MIRTAZAPINE [Concomitant]
     Active Substance: MIRTAZAPINE
     Indication: Generalised anxiety disorder
     Dosage: 7.5 MILLIGRAM, QD
     Dates: start: 20201209
  27. SODIUM BICARBONATE [Concomitant]
     Active Substance: SODIUM BICARBONATE
     Indication: Malabsorption
     Dosage: 325 MILLIGRAM, BID
     Dates: start: 20201202
  28. COUMADIN [Concomitant]
     Active Substance: WARFARIN SODIUM
     Indication: Abdominal pain
     Dosage: 4 MILLIGRAM, SINGLE
     Dates: start: 20180719, end: 20180719
  29. COUMADIN [Concomitant]
     Active Substance: WARFARIN SODIUM
     Indication: Thrombosis
     Dosage: 4 MILLIGRAM, QD
     Dates: start: 20181113, end: 20181113
  30. WARFARIN [Concomitant]
     Active Substance: WARFARIN
     Indication: Syncope
  31. WARFARIN [Concomitant]
     Active Substance: WARFARIN
     Indication: Circulatory collapse
  32. VITAMIN B6 [Concomitant]
     Active Substance: PYRIDOXINE HYDROCHLORIDE
     Indication: Short-bowel syndrome
  33. LOPERAMIDE [Concomitant]
     Active Substance: LOPERAMIDE
     Indication: Short-bowel syndrome
  34. THIAMINE [Concomitant]
     Active Substance: THIAMINE
     Indication: Hypovitaminosis
     Dosage: 50 MILLIGRAM, QD
     Dates: start: 20141203, end: 20170819
  35. PYRIDOXINE HYDROCHLORIDE [Concomitant]
     Active Substance: PYRIDOXINE HYDROCHLORIDE
     Indication: Hypovitaminosis
     Dosage: 50 MILLIGRAM, TID
  36. FERROUS SULFATE [Concomitant]
     Active Substance: FERROUS SULFATE
     Indication: Anaemia
     Dosage: 325 MILLIGRAM, QD
     Dates: start: 20170819
  37. LOVENOX [Concomitant]
     Active Substance: ENOXAPARIN SODIUM
     Indication: Thrombosis prophylaxis
     Dosage: 80 MILLIGRAM, QD
     Dates: start: 20181108, end: 20181112
  38. COREG [Concomitant]
     Active Substance: CARVEDILOL
     Indication: Product used for unknown indication
     Dosage: 5 MILLIGRAM, BID
     Dates: start: 20240826

REACTIONS (5)
  - Colitis ischaemic [Recovered/Resolved]
  - Device malfunction [Recovered/Resolved]
  - Cellulitis [Recovered/Resolved]
  - Tooth abscess [Recovered/Resolved]
  - Abdominal pain upper [Recovered/Resolved]

NARRATIVE: CASE EVENT DATE: 20180702
